FAERS Safety Report 19375363 (Version 7)
Quarter: 2021Q4

REPORT INFORMATION
  Report Type: Spontaneous
  Country: JP (occurrence: JP)
  Receive Date: 20210604
  Receipt Date: 20211123
  Transmission Date: 20220303
  Serious: Yes (Life-Threatening, Hospitalization, Other)
  Sender: FDA-Public Use
  Company Number: JP-ONO-2021JP013405

PATIENT
  Age: 76 Year
  Sex: Female
  Weight: 51 kg

DRUGS (23)
  1. SITAGLIPTIN [Suspect]
     Active Substance: SITAGLIPTIN
     Indication: Type 2 diabetes mellitus
     Dosage: 50 MG, EVERYDAY
     Route: 048
  2. DICLOFENAC SODIUM [Suspect]
     Active Substance: DICLOFENAC SODIUM
     Indication: Osteoarthritis
     Dosage: 30 MG, Q12H
     Route: 014
     Dates: start: 20210601, end: 20210601
  3. CILNIDIPINE\VALSARTAN [Concomitant]
     Active Substance: CILNIDIPINE\VALSARTAN
     Dosage: 1 DF, EVERYDAY
     Route: 048
     Dates: start: 20090116
  4. METGLUCO [Concomitant]
     Active Substance: METFORMIN HYDROCHLORIDE
     Dosage: 1000 MG, Q12H
     Route: 048
     Dates: start: 20090127
  5. NEXIUM [Concomitant]
     Active Substance: ESOMEPRAZOLE MAGNESIUM
     Dosage: 20 MG, EVERYDAY
     Route: 048
     Dates: start: 20121121
  6. CELECOXIB [Concomitant]
     Active Substance: CELECOXIB
     Dosage: 100 MG, Q12H
     Route: 048
     Dates: start: 20120302
  7. ICOSAPENT ETHYL [Concomitant]
     Active Substance: ICOSAPENT ETHYL
     Dosage: 600 MG, Q8H
     Route: 048
     Dates: start: 20110822
  8. CANAGLIFLOZIN [Concomitant]
     Active Substance: CANAGLIFLOZIN
     Dosage: 100 MG, EVERYDAY
     Route: 048
     Dates: start: 20140916
  9. HERBALS [Concomitant]
     Active Substance: HERBALS
     Dosage: 1 DF, Q12H
     Route: 048
  10. CILOSTAZOL [Concomitant]
     Active Substance: CILOSTAZOL
     Dosage: 100 MG, Q12H
     Route: 048
     Dates: start: 20171020
  11. CYMBALTA [Concomitant]
     Active Substance: DULOXETINE HYDROCHLORIDE
     Dosage: 20 MG, Q8H
     Route: 048
     Dates: start: 20170925
  12. EZETIMIBE\ROSUVASTATIN [Concomitant]
     Active Substance: EZETIMIBE\ROSUVASTATIN
     Dosage: 1 DF, EVERYDAY
     Route: 048
     Dates: start: 20160912
  13. ROSUVASTATIN [Concomitant]
     Active Substance: ROSUVASTATIN
     Dosage: 5 MG, Q12H
     Route: 048
     Dates: start: 20100318
  14. LUNESTA [Concomitant]
     Active Substance: ESZOPICLONE
     Dosage: 2 MG, EVERYDAY
     Route: 048
  15. LORAZEPAM [Concomitant]
     Active Substance: LORAZEPAM
     Dosage: 0.5 MG, Q12H
     Route: 048
  16. TULOBUTEROL [Concomitant]
     Active Substance: TULOBUTEROL
     Dosage: 2 MG, EVERYDAY; FORMULATION: TAPE (INCLUDING POULTICE)
     Route: 062
  17. LOXOPROFEN SODIUM [Concomitant]
     Active Substance: LOXOPROFEN SODIUM
     Dosage: 100 MG, EVERYDAY
     Route: 062
  18. LOXOPROFEN SODIUM [Concomitant]
     Active Substance: LOXOPROFEN SODIUM
     Dosage: 50 MG, EVERYDAY
     Route: 062
  19. CAMPHOR\CAPSICUM\METHYL SALICYLATE [Concomitant]
     Active Substance: CAMPHOR\CAPSICUM\METHYL SALICYLATE
     Dosage: UNK, Q12H; FORMULATION: TAPE (INCLUDING POULTICE)
     Route: 062
  20. BETAMETHASONE BUTYRATE PROPIONATE [Concomitant]
     Active Substance: BETAMETHASONE BUTYRATE PROPIONATE
     Dosage: UNK, Q12H
     Route: 061
  21. EURAX [Concomitant]
     Active Substance: CROTAMITON
     Dosage: UNK, Q12H; FORMULATION: OINTMENT, CREAM
     Route: 061
  22. TRELEGY ELLIPTA [Concomitant]
     Active Substance: FLUTICASONE FUROATE\UMECLIDINIUM BROMIDE\VILANTEROL TRIFENATATE
     Dosage: UNK, EVERYDAY; FORMULATION: INHALER
     Route: 055
  23. HYALURONATE SODIUM [Concomitant]
     Active Substance: HYALURONATE SODIUM
     Dosage: UNK, Q2W
     Route: 065

REACTIONS (4)
  - Anaphylactic shock [Recovering/Resolving]
  - Erythema [Recovering/Resolving]
  - Erythema [Recovering/Resolving]
  - Pruritus [Recovering/Resolving]

NARRATIVE: CASE EVENT DATE: 20210601
